FAERS Safety Report 8619850-0 (Version None)
Quarter: 2012Q3

REPORT INFORMATION
  Report Type: 
  Country: None (occurrence: None)
  Receive Date: 20120816
  Receipt Date: 20120816
  Transmission Date: 20120928
  Serious: Yes (Life-Threatening, Hospitalization, Other)
  Sender: FDA-Public Use
  Company Number: None

PATIENT
  Age: 71 Year
  Sex: Male

DRUGS (1)
  1. LISINOPRIL AND HYDROCHLOROTHIAZIDE [Suspect]
     Indication: HYPERTENSION
     Dosage: 1 DAILY PO
     Route: 048
     Dates: start: 20111107, end: 20120812

REACTIONS (5)
  - DYSPNOEA [None]
  - OEDEMA MUCOSAL [None]
  - SWOLLEN TONGUE [None]
  - DYSPHAGIA [None]
  - PHARYNGEAL OEDEMA [None]
